FAERS Safety Report 14530723 (Version 1)
Quarter: 2018Q1

REPORT INFORMATION
  Report Type: Spontaneous
  Country: US (occurrence: US)
  Receive Date: 20180213
  Receipt Date: 20180213
  Transmission Date: 20180509
  Serious: Yes (Death)
  Sender: FDA-Public Use
  Company Number: None

PATIENT
  Age: 59 Year
  Sex: Female

DRUGS (12)
  1. DEXILANT [Concomitant]
     Active Substance: DEXLANSOPRAZOLE
  2. SMZ/TMP [Concomitant]
     Active Substance: SULFAMETHOXAZOLE\TRIMETHOPRIM
  3. DARZALEX [Suspect]
     Active Substance: DARATUMUMAB
     Indication: PLASMA CELL MYELOMA
     Dosage: ?          OTHER FREQUENCY:DAYS 1,2,9,15,16,;?
     Route: 042
  4. FLUTICASONE. [Concomitant]
     Active Substance: FLUTICASONE
  5. HYDROCO/APAP [Concomitant]
     Active Substance: ACETAMINOPHEN\HYDROCODONE
  6. ENALAPRIL [Concomitant]
     Active Substance: ENALAPRIL
  7. METOPROLOL TARTRATE. [Concomitant]
     Active Substance: METOPROLOL TARTRATE
  8. DARZALEX [Suspect]
     Active Substance: DARATUMUMAB
     Indication: PLASMA CELL MYELOMA
     Dosage: ?          OTHER FREQUENCY:DAYS 1,2,9,15,16,;?
     Route: 042
  9. METFORMIN [Concomitant]
     Active Substance: METFORMIN HYDROCHLORIDE
  10. CYCLOBENZAPR [Concomitant]
     Active Substance: CYCLOBENZAPRINE
  11. DOK [Concomitant]
     Active Substance: DOCUSATE SODIUM
  12. MONTELUKAST [Concomitant]
     Active Substance: MONTELUKAST SODIUM

REACTIONS (1)
  - Death [None]

NARRATIVE: CASE EVENT DATE: 20180209
